FAERS Safety Report 19975421 (Version 1)
Quarter: 2021Q4

REPORT INFORMATION
  Report Type: Spontaneous
  Country: CA (occurrence: CA)
  Receive Date: 20211020
  Receipt Date: 20211020
  Transmission Date: 20220304
  Serious: Yes (Other)
  Sender: FDA-Public Use
  Company Number: CA-UCBSA-2021048922

PATIENT
  Age: 5 Month
  Sex: Female

DRUGS (6)
  1. KEPPRA [Suspect]
     Active Substance: LEVETIRACETAM
     Indication: Generalised tonic-clonic seizure
     Dosage: UNK
  2. PHENOBARBITAL [Concomitant]
     Active Substance: PHENOBARBITAL
     Indication: Generalised tonic-clonic seizure
  3. PHENYTOIN [Concomitant]
     Active Substance: PHENYTOIN
     Indication: Generalised tonic-clonic seizure
  4. CLOBAZAM [Concomitant]
     Active Substance: CLOBAZAM
     Indication: Generalised tonic-clonic seizure
  5. PYRIDOXINE [Concomitant]
     Active Substance: PYRIDOXINE
     Indication: Epilepsy
  6. ARGININE [Concomitant]
     Active Substance: ARGININE
     Indication: Epilepsy
     Dosage: 12 MILLIGRAM, ONCE DAILY (QD)

REACTIONS (2)
  - Status epilepticus [Unknown]
  - Intellectual disability [Unknown]
